FAERS Safety Report 4922229-6 (Version None)
Quarter: 2006Q1

REPORT INFORMATION
  Report Type: 
  Country: None (occurrence: None)
  Receive Date: 20060224
  Receipt Date: 20050105
  Transmission Date: 20060701
  Serious: Yes (Hospitalization, Disabling)
  Sender: FDA-Public Use
  Company Number: US-MERCK-0501USA00577

PATIENT
  Age: 62 Year
  Sex: Male
  Weight: 132 kg

DRUGS (9)
  1. VIOXX [Suspect]
     Indication: BACK PAIN
     Route: 048
     Dates: start: 20010101
  2. VIOXX [Suspect]
     Route: 048
     Dates: start: 20030101
  3. VIOXX [Suspect]
     Indication: BURSITIS
     Route: 048
     Dates: start: 20010101
  4. VIOXX [Suspect]
     Route: 048
     Dates: start: 20030101
  5. LISINOPRIL [Concomitant]
     Route: 048
  6. VERAPAMIL [Concomitant]
     Route: 048
  7. VITAMIN E [Concomitant]
     Route: 065
  8. ASCORBIC ACID [Concomitant]
     Route: 065
  9. VITAMINS (UNSPECIFIED) [Concomitant]
     Route: 065

REACTIONS (26)
  - ACUTE MYOCARDIAL INFARCTION [None]
  - ANGINA UNSTABLE [None]
  - ATRIAL FIBRILLATION [None]
  - BRONCHIAL HYPERACTIVITY [None]
  - CARDIAC DISORDER [None]
  - CARDIAC FAILURE CONGESTIVE [None]
  - CARDIOMEGALY [None]
  - CORONARY ARTERY DISEASE [None]
  - COUGH [None]
  - FLUID OVERLOAD [None]
  - HAEMATOCHEZIA [None]
  - HYPERLIPIDAEMIA [None]
  - HYPERTENSION [None]
  - HYPOGLYCAEMIA [None]
  - IRON DEFICIENCY ANAEMIA [None]
  - MITRAL VALVE DISEASE [None]
  - MITRAL VALVE INCOMPETENCE [None]
  - OEDEMA PERIPHERAL [None]
  - PHARYNGOLARYNGEAL PAIN [None]
  - PLEURAL EFFUSION [None]
  - POLYURIA [None]
  - PULMONARY HYPERTENSION [None]
  - RHINITIS ALLERGIC [None]
  - SHOULDER PAIN [None]
  - SLEEP APNOEA SYNDROME [None]
  - VENTRICULAR HYPOKINESIA [None]
